FAERS Safety Report 10017385 (Version 1)
Quarter: 2014Q1

REPORT INFORMATION
  Report Type: Spontaneous
  Country: US (occurrence: US)
  Receive Date: 20140318
  Receipt Date: 20140318
  Transmission Date: 20141002
  Serious: No
  Sender: FDA-Public Use
  Company Number: US-PFIZER INC-2014073833

PATIENT
  Sex: Female

DRUGS (1)
  1. AMLODIPINE BESILATE [Suspect]
     Dosage: 5 MG, 2X/DAY

REACTIONS (3)
  - Flatulence [Unknown]
  - Vomiting [Unknown]
  - Nausea [Unknown]
